FAERS Safety Report 16251473 (Version 1)
Quarter: 2019Q2

REPORT INFORMATION
  Report Type: Spontaneous
  Country: SE (occurrence: SE)
  Receive Date: 20190429
  Receipt Date: 20190429
  Transmission Date: 20190711
  Serious: Yes (Death)
  Sender: FDA-Public Use
  Company Number: SE-PFIZER INC-2019180189

PATIENT
  Age: 33 Year
  Sex: Female

DRUGS (20)
  1. CALCICHEW-D3 [Concomitant]
     Active Substance: CALCIUM\CHOLECALCIFEROL
     Dosage: 2 DF, (1X2)
  2. LERGIGAN [PROMETHAZINE HYDROCHLORIDE] [Concomitant]
     Dosage: 50 MG, AS NEEDED
  3. THERALEN [Concomitant]
     Active Substance: TRIMEPRAZINE
     Dosage: (0.5-2 ML AS NEEDED)
  4. MICROLAX [SODIUM CITRATE;SODIUM LAURYL SULFOACETATE] [Concomitant]
     Dosage: 1 DF, AS NEEDED
  5. NOZINAN [LEVOMEPROMAZINE MALEATE] [Concomitant]
     Dosage: 5 MG, AS NEEDED
  6. KETIPINOR [Concomitant]
     Active Substance: QUETIAPINE FUMARATE
     Dosage: 100 MG AT NIGHT
  7. BEHEPAN [CYANOCOBALAMIN] [Concomitant]
     Dosage: 1 MG, DAILY
  8. LYRICA [Suspect]
     Active Substance: PREGABALIN
     Indication: ANXIETY
     Dosage: 300 MG, DAILY
     Route: 048
  9. DEPO-PROVERA [Concomitant]
     Active Substance: MEDROXYPROGESTERONE ACETATE
  10. VENLAFAXINE [Concomitant]
     Active Substance: VENLAFAXINE HYDROCHLORIDE
     Dosage: 150 MG, DAILY
  11. OXASCAND [Concomitant]
     Active Substance: OXAZEPAM
     Dosage: 5 MG, AS NEEDED
  12. PRIMPERAN [Concomitant]
     Active Substance: METOCLOPRAMIDE HYDROCHLORIDE
     Dosage: 10 MG, AS NEEDED
  13. MIRTAZAPINE. [Concomitant]
     Active Substance: MIRTAZAPINE
     Dosage: 30 MG (AT NIGHT)
  14. BUPREFARM [Suspect]
     Active Substance: BUPRENORPHINE
     Indication: FIBROMYALGIA
     Dosage: (AS SPECIFICALLY PRESCRIBED)
     Route: 062
  15. ATTENTIN (DEXAMFETAMINE SULFATE) [Suspect]
     Active Substance: DEXTROAMPHETAMINE SULFATE
     Indication: AFFECT LABILITY
     Dosage: 30 MG, DAILY
     Route: 048
     Dates: start: 20160620, end: 20180110
  16. STILNOCT [Concomitant]
     Active Substance: ZOLPIDEM TARTRATE
     Dosage: 5 MG, AS NEEDED
  17. PARAFLEX [CHLORZOXAZONE] [Concomitant]
     Dosage: 250 MG, 1-2 AS NEEDED
  18. OXYCODONE [Suspect]
     Active Substance: OXYCODONE
     Indication: FIBROMYALGIA
     Dosage: 1 DF, AS NEEDED
     Route: 048
  19. ALVEDON FORTE [Concomitant]
     Dosage: 4 G, DAILY
  20. DIMOR [Concomitant]
     Active Substance: LOPERAMIDE
     Dosage: 2 MG, AS NEEDED

REACTIONS (2)
  - Death [Fatal]
  - Overdose [Fatal]

NARRATIVE: CASE EVENT DATE: 201812
